FAERS Safety Report 4924667-4 (Version None)
Quarter: 2006Q1

REPORT INFORMATION
  Report Type: 
  Country: None (occurrence: None)
  Receive Date: 20060127
  Receipt Date: 20051215
  Transmission Date: 20060701
  Serious: Yes (Other)
  Sender: FDA-Public Use
  Company Number: 2005169798

PATIENT
  Age: 69 Year
  Sex: Female

DRUGS (9)
  1. LYRICA [Suspect]
     Indication: CONVULSION
     Dosage: 600 MG (300 MG, 2 IN 1 D)
  2. RHINOCORT [Concomitant]
  3. POTASSIUM [Concomitant]
  4. TRIAMTERENE [Concomitant]
  5. HYDROCHLOROTHIAZIDE [Concomitant]
  6. LEVOXYL [Concomitant]
  7. ULTRAM [Concomitant]
  8. ALBUTEROL [Concomitant]
  9. ESTROGEN NOS [Concomitant]

REACTIONS (1)
  - HYPERTHERMIA MALIGNANT [None]
